FAERS Safety Report 21130669 (Version 1)
Quarter: 2022Q3

REPORT INFORMATION
  Report Type: Spontaneous
  Country: CA (occurrence: None)
  Receive Date: 20220726
  Receipt Date: 20220726
  Transmission Date: 20221027
  Serious: Yes (Hospitalization)
  Sender: FDA-Public Use
  Company Number: CA-ROCHE-3144145

PATIENT
  Age: 63 Year
  Sex: Female

DRUGS (3)
  1. RITUXIMAB [Suspect]
     Active Substance: RITUXIMAB
     Indication: Rheumatoid arthritis
     Dosage: DRUG DOSE FIRST ADMINISTERED IS 1.0 DOSAGE FORMS
     Route: 065
  2. PRED (CHINA) [Concomitant]
  3. BUDESONIDE [Concomitant]
     Active Substance: BUDESONIDE
     Route: 048

REACTIONS (9)
  - Rash [Recovered/Resolved]
  - Musculoskeletal stiffness [Recovered/Resolved]
  - Inflammation [Recovered/Resolved]
  - Infection [Recovered/Resolved]
  - Osteoarthritis [Recovered/Resolved]
  - Diarrhoea [Recovered/Resolved]
  - Headache [Recovered/Resolved]
  - Hyperhidrosis [Recovered/Resolved]
  - Colitis [Recovered/Resolved]
